FAERS Safety Report 7537592-X (Version None)
Quarter: 2011Q2

REPORT INFORMATION
  Report Type: 
  Country: None (occurrence: None)
  Receive Date: 20110609
  Receipt Date: 20070615
  Transmission Date: 20111010
  Serious: Yes (Death)
  Sender: FDA-Public Use
  Company Number: PHNR2007AU01154

PATIENT
  Sex: Male

DRUGS (3)
  1. CLONAZEPAM [Suspect]
     Dosage: 2 MG, QID
     Dates: start: 19970101
  2. QUETIAPINE [Suspect]
     Dosage: 300 MG, TID
     Dates: start: 20070101
  3. CLOZAPINE [Suspect]
     Indication: SCHIZOPHRENIA, PARANOID TYPE
     Dosage: 250 MG - 800 MG DAILY
     Route: 048
     Dates: start: 19971020

REACTIONS (1)
  - DEATH [None]
